FAERS Safety Report 6299720-6 (Version None)
Quarter: 2009Q3

REPORT INFORMATION
  Report Type: 
  Country: None (occurrence: None)
  Receive Date: 20090805
  Receipt Date: 20090805
  Transmission Date: 20100115
  Serious: Yes (Hospitalization)
  Sender: FDA-Public Use
  Company Number: None

PATIENT
  Age: 76 Year
  Sex: Male
  Weight: 112.5 kg

DRUGS (1)
  1. METHOTREXATE [Suspect]
     Dates: start: 20090611, end: 20090611

REACTIONS (1)
  - RESPIRATORY DEPRESSION [None]
